FAERS Safety Report 16745852 (Version 1)
Quarter: 2019Q3

REPORT INFORMATION
  Report Type: Spontaneous
  Country: FR (occurrence: FR)
  Receive Date: 20190827
  Receipt Date: 20190827
  Transmission Date: 20191005
  Serious: Yes (Death, Other)
  Sender: FDA-Public Use
  Company Number: PHHY2019FR198214

PATIENT

DRUGS (4)
  1. 5-FLUOROURACIL [Suspect]
     Active Substance: FLUOROURACIL
     Indication: HEAD AND NECK CANCER
     Dosage: 750 MG/M2,  (ON DAY 5)
     Route: 065
  2. SODIUM CHLORIDE. [Concomitant]
     Active Substance: SODIUM CHLORIDE
     Indication: PRODUCT USED FOR UNKNOWN INDICATION
     Dosage: UNK
     Route: 065
  3. DOCETAXEL. [Suspect]
     Active Substance: DOCETAXEL
     Indication: HEAD AND NECK CANCER
     Dosage: 75 MG/M2, (ON DAY 1)
     Route: 065
  4. CISPLATIN. [Suspect]
     Active Substance: CISPLATIN
     Indication: HEAD AND NECK CANCER
     Dosage: 75 MG/M2, (ON DAY 1)
     Route: 065

REACTIONS (2)
  - Pneumonia [Fatal]
  - Febrile neutropenia [Fatal]
